FAERS Safety Report 7967646-5 (Version None)
Quarter: 2011Q4

REPORT INFORMATION
  Report Type: 
  Country: None (occurrence: None)
  Receive Date: 20111209
  Receipt Date: 20111129
  Transmission Date: 20120403
  Serious: Yes (Hospitalization)
  Sender: FDA-Public Use
  Company Number: US-BAYER-201034992NA

PATIENT
  Age: 36 Year
  Sex: Female
  Weight: 63.492 kg

DRUGS (10)
  1. DENAVIR [Concomitant]
  2. DROSPIRENONE AND ETHINYL ESTRADIOL [Suspect]
     Indication: MENSTRUATION IRREGULAR
  3. YASMIN [Suspect]
     Indication: CONTRACEPTION
     Dosage: UNK
     Route: 048
     Dates: start: 20040101, end: 20080101
  4. VALTREX [Concomitant]
  5. ZYPREXA [Concomitant]
     Indication: DEPRESSION
  6. YAZ [Suspect]
     Route: 048
  7. YASMIN [Suspect]
     Indication: MENSTRUATION IRREGULAR
  8. PREMPRO [Concomitant]
  9. WELLBUTRIN [Concomitant]
     Indication: DEPRESSION
  10. DROSPIRENONE AND ETHINYL ESTRADIOL [Suspect]
     Indication: CONTRACEPTION
     Dosage: UNK
     Route: 048
     Dates: start: 20080101, end: 20090101

REACTIONS (10)
  - DYSPEPSIA [None]
  - CHOLECYSTITIS CHRONIC [None]
  - DEPRESSION [None]
  - ABDOMINAL DISTENSION [None]
  - CHOLECYSTECTOMY [None]
  - FLATULENCE [None]
  - CONSTIPATION [None]
  - SCAR [None]
  - ANXIETY [None]
  - DIARRHOEA [None]
